FAERS Safety Report 23215879 (Version 4)
Quarter: 2024Q2

REPORT INFORMATION
  Report Type: Report from Study
  Country: US (occurrence: US)
  Receive Date: 20231122
  Receipt Date: 20240517
  Transmission Date: 20240716
  Serious: Yes (Hospitalization, Other)
  Sender: FDA-Public Use
  Company Number: US-SANDOZ-SDZ2023US005397

PATIENT
  Sex: Female
  Weight: 6.803 kg

DRUGS (9)
  1. TREPROSTINIL [Suspect]
     Active Substance: TREPROSTINIL
     Indication: Pulmonary arterial hypertension
     Dosage: 20 NG/KG/ MIN
     Route: 058
     Dates: start: 20230707
  2. TREPROSTINIL [Suspect]
     Active Substance: TREPROSTINIL
     Dosage: 26 NG/KG/ MIN
     Route: 058
     Dates: start: 20230707
  3. TREPROSTINIL [Suspect]
     Active Substance: TREPROSTINIL
     Dosage: 34 NG/KG/ MIN
     Route: 058
     Dates: start: 20230707
  4. TREPROSTINIL [Suspect]
     Active Substance: TREPROSTINIL
     Dosage: 18 NG/KG/ MIN
     Route: 058
     Dates: start: 20230707
  5. SILDENAFIL CITRATE [Concomitant]
     Active Substance: SILDENAFIL CITRATE
     Indication: Product used for unknown indication
     Dosage: UNK
     Route: 065
  6. TRACLEER [Concomitant]
     Active Substance: BOSENTAN
     Dosage: 15.6 MG
     Route: 065
  7. TRACLEER [Concomitant]
     Active Substance: BOSENTAN
     Indication: Product used for unknown indication
     Dosage: UNK
     Route: 065
  8. UPTRAVI [Concomitant]
     Active Substance: SELEXIPAG
     Dosage: 150 UG, BID
     Route: 065
  9. UPTRAVI [Concomitant]
     Active Substance: SELEXIPAG
     Indication: Product used for unknown indication
     Dosage: UNK
     Route: 065

REACTIONS (11)
  - Clostridium difficile infection [Unknown]
  - Rhinovirus infection [Recovering/Resolving]
  - Weight decreased [Unknown]
  - Viral infection [Unknown]
  - Injection site erythema [Unknown]
  - Pneumonia [Unknown]
  - Oxygen saturation decreased [Unknown]
  - Bowel movement irregularity [Unknown]
  - Retching [Unknown]
  - Nausea [Unknown]
  - Diarrhoea [Unknown]
